FAERS Safety Report 8814992 (Version 1)
Quarter: 2012Q4

REPORT INFORMATION
  Report Type: 
  Country: US (occurrence: US)
  Receive Date: 20120928
  Receipt Date: 20120928
  Transmission Date: 20130627
  Serious: No
  Sender: FDA-Public Use
  Company Number: US-PFIZER INC-2012238767

PATIENT
  Sex: Female

DRUGS (19)
  1. LYRICA [Suspect]
     Indication: DIABETIC NEUROPATHY
     Dosage: UNK
  2. NORTRIPTYLINE [Concomitant]
     Indication: DIABETIC NEUROPATHY
     Dosage: UNK
  3. NORTRIPTYLINE [Concomitant]
     Indication: PAIN
  4. NORTRIPTYLINE [Concomitant]
     Indication: NEURALGIA
  5. MORPHINE SULFATE [Concomitant]
     Indication: DIABETIC NEUROPATHY
     Dosage: UNK
  6. MORPHINE SULFATE [Concomitant]
     Indication: PAIN
  7. MORPHINE SULFATE [Concomitant]
     Indication: NEURALGIA
  8. DURAGESIC PATCH [Concomitant]
     Indication: DIABETIC NEUROPATHY
     Dosage: UNK
  9. DURAGESIC PATCH [Concomitant]
     Indication: PAIN
  10. DURAGESIC PATCH [Concomitant]
     Indication: NEURALGIA
  11. LIDODERM PATCH [Concomitant]
     Indication: DIABETIC NEUROPATHY
     Dosage: UNK
  12. LIDODERM PATCH [Concomitant]
     Indication: PAIN
  13. LIDODERM PATCH [Concomitant]
     Indication: NEURALGIA
  14. TRAMADOL [Concomitant]
     Indication: DIABETIC NEUROPATHY
     Dosage: UNK
  15. TRAMADOL [Concomitant]
     Indication: PAIN
  16. TRAMADOL [Concomitant]
     Indication: NEURALGIA
  17. SAVELLA [Concomitant]
     Indication: DIABETIC NEUROPATHY
     Dosage: UNK
  18. SAVELLA [Concomitant]
     Indication: PAIN
  19. SAVELLA [Concomitant]
     Indication: NEURALGIA

REACTIONS (2)
  - Swelling [Unknown]
  - Blood pressure increased [Unknown]
